FAERS Safety Report 10540168 (Version 1)
Quarter: 2014Q4

REPORT INFORMATION
  Report Type: Spontaneous
  Country: IT (occurrence: None)
  Receive Date: 20141022
  Receipt Date: 20141022
  Transmission Date: 20150529
  Serious: Yes (Other)
  Sender: FDA-Public Use
  Company Number: 2581167

PATIENT
  Age: 15 Year
  Sex: Male

DRUGS (8)
  1. GLIVEC [Concomitant]
     Active Substance: IMATINIB MESYLATE
  2. RANITIDINE [Concomitant]
     Active Substance: RANITIDINE\RANITIDINE HYDROCHLORIDE
  3. BACTRIM [Concomitant]
     Active Substance: SULFAMETHOXAZOLE\TRIMETHOPRIM
  4. METHOTREXATE [Concomitant]
     Active Substance: METHOTREXATE
  5. CYTARABINE. [Suspect]
     Active Substance: CYTARABINE
     Indication: ACUTE LYMPHOCYTIC LEUKAEMIA
     Dosage: CYCLICAL
     Route: 042
     Dates: start: 20140909, end: 20140911
  6. VINCRISTINE [Suspect]
     Active Substance: VINCRISTINE
     Indication: ACUTE LYMPHOCYTIC LEUKAEMIA
     Dosage: CYCLICAL
     Route: 042
     Dates: start: 20140908, end: 20140913
  7. DEXAMETHASONE. [Concomitant]
     Active Substance: DEXAMETHASONE
  8. MYCOSTATIN [Concomitant]
     Active Substance: NYSTATIN

REACTIONS (2)
  - Chest pain [None]
  - Hiccups [None]

NARRATIVE: CASE EVENT DATE: 20140910
